FAERS Safety Report 13374496 (Version 1)
Quarter: 2017Q1

REPORT INFORMATION
  Report Type: Spontaneous
  Country: RS (occurrence: RS)
  Receive Date: 20170327
  Receipt Date: 20170327
  Transmission Date: 20170429
  Serious: Yes (Other)
  Sender: FDA-Public Use
  Company Number: RS-PFIZER INC-2017128688

PATIENT
  Age: 7 Decade
  Sex: Female

DRUGS (1)
  1. LYRICA [Suspect]
     Active Substance: PREGABALIN

REACTIONS (3)
  - Pharyngeal oedema [Unknown]
  - Hypersensitivity [Unknown]
  - Swollen tongue [Unknown]
